FAERS Safety Report 5336484-4 (Version None)
Quarter: 2007Q2

REPORT INFORMATION
  Report Type: 
  Country: None (occurrence: None)
  Receive Date: 20070524
  Receipt Date: 20070508
  Transmission Date: 20071010
  Serious: Yes (Disabling)
  Sender: FDA-Public Use
  Company Number: PHBS2007JP06043

PATIENT
  Age: 62 Year
  Sex: Male
  Weight: 70.0354 kg

DRUGS (1)
  1. VISUDYNE [Suspect]
     Indication: MACULAR DEGENERATION
     Dosage: 5.4  UNK   ONCE IV
     Route: 042
     Dates: start: 20070223, end: 20070223

REACTIONS (4)
  - CHOROIDAL INFARCTION [None]
  - OCULAR VASCULAR DISORDER [None]
  - RETINAL DEGENERATION [None]
  - SCOTOMA [None]
